FAERS Safety Report 18079288 (Version 1)
Quarter: 2020Q3

REPORT INFORMATION
  Report Type: Spontaneous
  Country: HK (occurrence: HK)
  Receive Date: 20200728
  Receipt Date: 20200728
  Transmission Date: 20201103
  Serious: Yes (Life-Threatening, Hospitalization)
  Sender: FDA-Public Use
  Company Number: HK-LUPIN PHARMACEUTICALS INC.-2020-03821

PATIENT
  Age: 3 Year
  Sex: Female

DRUGS (5)
  1. AMOXICILLIN/CLAVULANIC ACID [Suspect]
     Active Substance: AMOXICILLIN\CLAVULANIC ACID
     Indication: CHILDHOOD ASTHMA
     Dosage: 30 MILLIGRAM/KILOGRAM, TID ( (IN 8 HR)
     Route: 042
  2. SALBUTAMOL [Suspect]
     Active Substance: ALBUTEROL
     Indication: CHILDHOOD ASTHMA
     Dosage: UNK, CONTINUOUS NEBULISATION
     Route: 055
  3. MAGNESIUM SULFATE. [Suspect]
     Active Substance: MAGNESIUM SULFATE
     Indication: CHILDHOOD ASTHMA
     Dosage: UNK
     Route: 042
  4. CISATRACURIUM. [Concomitant]
     Active Substance: CISATRACURIUM
     Indication: MUSCLE RELAXANT THERAPY
     Dosage: UNK
     Route: 065
  5. METHYLPREDNISOLONE. [Suspect]
     Active Substance: METHYLPREDNISOLONE
     Indication: CHILDHOOD ASTHMA
     Dosage: UNK
     Route: 042

REACTIONS (1)
  - Drug ineffective [Unknown]
